FAERS Safety Report 22889421 (Version 3)
Quarter: 2023Q4

REPORT INFORMATION
  Report Type: Report from Study
  Country: US (occurrence: US)
  Receive Date: 20230831
  Receipt Date: 20231031
  Transmission Date: 20240110
  Serious: No
  Sender: FDA-Public Use
  Company Number: US-002147023-NVSC2023US189244

PATIENT
  Sex: Female

DRUGS (1)
  1. KISQALI [Suspect]
     Active Substance: RIBOCICLIB
     Indication: Breast cancer
     Dosage: 400 MG, QD
     Route: 048
     Dates: start: 202308

REACTIONS (7)
  - Hot flush [Unknown]
  - Pain in extremity [Unknown]
  - Tumour marker decreased [Unknown]
  - Nausea [Unknown]
  - Constipation [Unknown]
  - Diarrhoea [Unknown]
  - Alopecia [Unknown]
